FAERS Safety Report 10255252 (Version 1)
Quarter: 2014Q2

REPORT INFORMATION
  Report Type: Spontaneous
  Country: US (occurrence: None)
  Receive Date: 20140522
  Receipt Date: 20140522
  Transmission Date: 20141212
  Serious: No
  Sender: FDA-Public Use
  Company Number: 1000054585

PATIENT
  Sex: Female

DRUGS (3)
  1. TUDORZA PRESSAIR [Suspect]
     Dates: start: 201402
  2. SYMBICORT (BUDESONIDE W/ FORMOTEROL FURMATE) (BUDESONIDE W/ FORMOTEROL FULMARATE) [Concomitant]
  3. ALBUTEROL SULFATE (SALBUTAMOL SULFATE) (SALBUTAMOL SULFATE) [Concomitant]

REACTIONS (2)
  - Dysphonia [None]
  - Oropharyngeal pain [None]
